FAERS Safety Report 7461223-0 (Version None)
Quarter: 2011Q2

REPORT INFORMATION
  Report Type: 
  Country: None (occurrence: None)
  Receive Date: 20110505
  Receipt Date: 20110429
  Transmission Date: 20111010
  Serious: Yes (Hospitalization, Other)
  Sender: FDA-Public Use
  Company Number: CA-BRISTOL-MYERS SQUIBB COMPANY-15709652

PATIENT
  Age: 20 Year
  Sex: Male

DRUGS (7)
  1. CLOZARIL [Suspect]
     Dosage: STARTED ON 3/4-JAN-2008.
     Dates: start: 20080101
  2. OLANZAPINE [Concomitant]
  3. TENORMIN [Concomitant]
  4. ARIPIPRAZOLE [Suspect]
     Indication: PSYCHOTIC DISORDER
     Dosage: DOSE INCREASED TO 15MG DAILY ON 20-OCT-2010.
     Dates: start: 20100401
  5. EFFEXOR XR [Suspect]
     Dates: start: 20090501
  6. LOXAPINE [Concomitant]
  7. LIPITOR [Concomitant]

REACTIONS (3)
  - GRANULOCYTOPENIA [None]
  - HALLUCINATION, AUDITORY [None]
  - PSYCHOTIC DISORDER [None]
